FAERS Safety Report 12054349 (Version 1)
Quarter: 2016Q1

REPORT INFORMATION
  Report Type: Spontaneous
  Country: US (occurrence: US)
  Receive Date: 20160209
  Receipt Date: 20160209
  Transmission Date: 20160526
  Serious: Yes (Hospitalization)
  Sender: FDA-Public Use
  Company Number: US-AUROBINDO-AUR-APL-2016-01012

PATIENT
  Age: 17 Year

DRUGS (2)
  1. METHYLPREDNISOLONE. [Suspect]
     Active Substance: METHYLPREDNISOLONE
     Indication: BRONCHIAL HYPERREACTIVITY
     Dosage: 125 MG, UNK
     Route: 042
  2. PREDNISONE. [Suspect]
     Active Substance: PREDNISONE
     Indication: BRONCHIAL HYPERREACTIVITY
     Dosage: 50 MG, DAILY
     Route: 048

REACTIONS (7)
  - Dehydration [Unknown]
  - Oral disorder [Unknown]
  - Vomiting [Unknown]
  - Measles [Unknown]
  - Contraindication to vaccination [Unknown]
  - Pyrexia [Unknown]
  - Rash papular [Unknown]
